FAERS Safety Report 16497869 (Version 2)
Quarter: 2019Q3

REPORT INFORMATION
  Report Type: Report from Study
  Country: CA (occurrence: CA)
  Receive Date: 20190628
  Receipt Date: 20190822
  Transmission Date: 20191004
  Serious: Yes (Other)
  Sender: FDA-Public Use
  Company Number: CA-JNJFOC-20190625570

PATIENT
  Age: 71 Year
  Sex: Female
  Weight: 60.5 kg

DRUGS (1)
  1. REMICADE [Suspect]
     Active Substance: INFLIXIMAB
     Indication: COLITIS ULCERATIVE
     Route: 042
     Dates: start: 20120731

REACTIONS (3)
  - Gamma-glutamyltransferase increased [Unknown]
  - Breast cancer [Unknown]
  - Lipids increased [Unknown]
